FAERS Safety Report 13482041 (Version 3)
Quarter: 2018Q1

REPORT INFORMATION
  Report Type: Report from Study
  Country: US (occurrence: US)
  Receive Date: 20170424
  Receipt Date: 20180117
  Transmission Date: 20180508
  Serious: No
  Sender: FDA-Public Use
  Company Number: US-AMGEN-USASL2017050902

PATIENT
  Age: 63 Year
  Sex: Male

DRUGS (1)
  1. REPATHA [Suspect]
     Active Substance: EVOLOCUMAB
     Indication: HYPERCHOLESTEROLAEMIA
     Dosage: 140 MG, Q2WK
     Route: 065

REACTIONS (7)
  - Pain [Unknown]
  - Poor quality sleep [Unknown]
  - Upper-airway cough syndrome [Not Recovered/Not Resolved]
  - Myalgia [Recovering/Resolving]
  - Nasal congestion [Unknown]
  - Muscle spasms [Recovering/Resolving]
  - Rhinorrhoea [Not Recovered/Not Resolved]
